FAERS Safety Report 21869606 (Version 2)
Quarter: 2023Q2

REPORT INFORMATION
  Report Type: Report from Study
  Country: US (occurrence: US)
  Receive Date: 20230117
  Receipt Date: 20230403
  Transmission Date: 20230722
  Serious: Yes (Hospitalization)
  Sender: FDA-Public Use
  Company Number: US-ABBVIE-4272534

PATIENT
  Sex: Female

DRUGS (3)
  1. VENCLEXTA [Suspect]
     Active Substance: VENETOCLAX
     Indication: B-cell prolymphocytic leukaemia
     Dosage: TIME INTERVAL: 0.33333333 DAYS: 07-2020 WAS THE LAST ADMIN DATE.
     Route: 048
     Dates: start: 20200724
  2. VENCLEXTA [Suspect]
     Active Substance: VENETOCLAX
     Indication: B-cell prolymphocytic leukaemia
     Route: 048
     Dates: start: 20200728
  3. VENCLEXTA [Suspect]
     Active Substance: VENETOCLAX
     Indication: B-cell prolymphocytic leukaemia
     Route: 048

REACTIONS (3)
  - Pneumonia [Unknown]
  - Fluid retention [Unknown]
  - White blood cell count decreased [Unknown]
